FAERS Safety Report 8397073-0 (Version None)
Quarter: 2012Q2

REPORT INFORMATION
  Report Type: 
  Country: None (occurrence: None)
  Receive Date: 20120530
  Receipt Date: 20120507
  Transmission Date: 20120825
  Serious: No
  Sender: FDA-Public Use
  Company Number: US-BAYER-2012-048188

PATIENT
  Age: 14 Month
  Sex: Male
  Weight: 11 kg

DRUGS (6)
  1. PULMICORT [Concomitant]
  2. SOMETHING FOR CLOSTRIDIUM DIFFICILE [Concomitant]
  3. ALEVE (CAPLET) [Suspect]
     Dosage: UNK
     Route: 048
     Dates: start: 20120507
  4. SINGULAIR [Concomitant]
  5. ALBUTEROL [Concomitant]
  6. NYSTATIN [Concomitant]

REACTIONS (1)
  - NO ADVERSE EVENT [None]
